FAERS Safety Report 4340260-9 (Version None)
Quarter: 2004Q2

REPORT INFORMATION
  Report Type: 
  Country: None (occurrence: None)
  Receive Date: 20040414
  Receipt Date: 20040330
  Transmission Date: 20050107
  Serious: Yes (Other)
  Sender: FDA-Public Use
  Company Number: 2004-0006870

PATIENT
  Age: 41 Year
  Sex: Female

DRUGS (4)
  1. VIREAD [Suspect]
     Indication: HIV INFECTION
     Dosage: SEE IMAGE
  2. LIPINAVIR/RITONAVIR (KALETRA) [Suspect]
     Indication: HIV INFECTION
     Dosage: SEE IMAGE
     Route: 048
  3. ATAZANAVIR (ATAZANAVIR) [Suspect]
     Indication: HIV INFECTION
     Dosage: 1 IN 1 D
  4. DIDANOSINE EC (DIDANOSINE) [Suspect]
     Indication: HIV INFECTION

REACTIONS (2)
  - JAUNDICE [None]
  - PANCREATITIS [None]
